FAERS Safety Report 7816297-1 (Version None)
Quarter: 2011Q4

REPORT INFORMATION
  Report Type: 
  Country: None (occurrence: None)
  Receive Date: 20111016
  Receipt Date: 20111003
  Transmission Date: 20120403
  Serious: Yes (Hospitalization, Other)
  Sender: FDA-Public Use
  Company Number: GB-MYLANLABS-2011S1019331

PATIENT
  Age: 43 Year
  Sex: Male

DRUGS (3)
  1. LAMOTRIGINE [Concomitant]
     Indication: EPILEPSY
  2. IBUPROFEN [Suspect]
     Indication: PRODUCT USED FOR UNKNOWN INDICATION
  3. DEPAKOTE [Suspect]
     Indication: EPILEPSY

REACTIONS (10)
  - HYPOCALCAEMIA [None]
  - DRUG LEVEL INCREASED [None]
  - CONVERSION DISORDER [None]
  - ALANINE AMINOTRANSFERASE INCREASED [None]
  - HYPERAMMONAEMIC ENCEPHALOPATHY [None]
  - OVERDOSE [None]
  - METABOLIC ACIDOSIS [None]
  - HYPERNATRAEMIA [None]
  - THROMBOCYTOPENIA [None]
  - BLOOD GLUCOSE DECREASED [None]
